FAERS Safety Report 9972825 (Version 1)
Quarter: 2014Q1

REPORT INFORMATION
  Report Type: Spontaneous
  Country: US (occurrence: None)
  Receive Date: 20140128
  Receipt Date: 20140128
  Transmission Date: 20141002
  Serious: Yes (Hospitalization)
  Sender: FDA-Public Use
  Company Number: A-US2013-84061

PATIENT
  Age: 73 Year
  Sex: Female

DRUGS (2)
  1. TRACLEER (BOSENTAN) TABLET [Suspect]
     Indication: PULMONARY ARTERIAL HYPERTENSION
     Route: 048
  2. VENTAVIS [Suspect]
     Indication: PULMONARY ARTERIAL HYPERTENSION
     Dosage: UNK, RESPIRATORY

REACTIONS (8)
  - Pulmonary arterial hypertension [None]
  - Breast swelling [None]
  - Insomnia [None]
  - Swelling [None]
  - Oedema peripheral [None]
  - Abdominal distension [None]
  - Dyspnoea exertional [None]
  - Fluid retention [None]
